FAERS Safety Report 9263648 (Version 1)
Quarter: 2013Q2

REPORT INFORMATION
  Report Type: Spontaneous
  Country: IT (occurrence: IT)
  Receive Date: 20130430
  Receipt Date: 20130430
  Transmission Date: 20140414
  Serious: Yes (Other)
  Sender: FDA-Public Use
  Company Number: IT-TEVA-399267ISR

PATIENT
  Age: 78 Year
  Sex: Female

DRUGS (7)
  1. LEVOFLOXACIN [Suspect]
     Indication: BACTERIAL INFECTION
     Dosage: 500 MILLIGRAM DAILY;
     Route: 048
     Dates: start: 20130227, end: 20130303
  2. REPAGLINIDE [Interacting]
     Indication: TYPE 2 DIABETES MELLITUS
     Dosage: 1 MILLIGRAM DAILY;
     Route: 048
     Dates: start: 20030301, end: 20130303
  3. METFORMIN [Interacting]
  4. LASIX [Concomitant]
     Dosage: 25 MG
  5. PLAVIX [Concomitant]
     Dosage: 75 MG
  6. CITALOPRAM BROMIDRATO [Concomitant]
  7. PANTOPRAZOLO SODICO SESQUIDRATO [Concomitant]

REACTIONS (2)
  - Hypoglycaemic coma [Recovered/Resolved]
  - Drug interaction [Recovered/Resolved]
